FAERS Safety Report 7933302-2 (Version None)
Quarter: 2011Q4

REPORT INFORMATION
  Report Type: 
  Country: None (occurrence: None)
  Receive Date: 20111122
  Receipt Date: 20111117
  Transmission Date: 20120403
  Serious: Yes (Hospitalization)
  Sender: FDA-Public Use
  Company Number: NL-PFIZER INC-2011282667

PATIENT
  Age: 48 Year
  Sex: Male

DRUGS (12)
  1. ATENOLOL [Suspect]
     Dosage: UNK
     Dates: start: 20111001
  2. PYRIDOXINE [Concomitant]
     Dosage: 20 MG, UNK
     Dates: start: 20111001
  3. CALCIUM CARBONATE [Concomitant]
  4. AMLODIPINE BESYLATE [Suspect]
     Dosage: 5 MG, UNK
     Dates: start: 20111001
  5. THIAMINE [Concomitant]
     Dosage: 100 MG, UNK
     Dates: start: 20111001
  6. ALLOPURINOL [Concomitant]
     Dosage: 300 MG, 1X/DAY
  7. LOSARTAN POTASSIUM [Suspect]
     Dosage: 100 MG, UNK
     Dates: start: 20111001
  8. THYRAX [Concomitant]
     Dosage: 50 UG, 1X/DAY
  9. LOPERAMIDE [Concomitant]
     Dosage: 1 MG, 2X/DAY
  10. ALENDRONIC ACID [Concomitant]
     Dosage: 70 MG, WEEKLY
  11. DICLOFENAC [Concomitant]
     Dosage: 25 MG, UNK
     Dates: start: 20111001
  12. OMEPRAZOLE [Concomitant]
     Dosage: 40 MG, 1X/DAY

REACTIONS (10)
  - SELF-INDUCED VOMITING [None]
  - CARDIAC DISORDER [None]
  - ACCIDENTAL EXPOSURE [None]
  - HYPOTENSION [None]
  - MYOCARDIAL ISCHAEMIA [None]
  - CONVULSION [None]
  - FALL [None]
  - POOR QUALITY SLEEP [None]
  - VENTRICULAR FIBRILLATION [None]
  - PALPITATIONS [None]
